FAERS Safety Report 7853960-0 (Version None)
Quarter: 2011Q4

REPORT INFORMATION
  Report Type: 
  Country: None (occurrence: None)
  Receive Date: 20111026
  Receipt Date: 20111024
  Transmission Date: 20120403
  Serious: No
  Sender: FDA-Public Use
  Company Number: US-PFIZER INC-2011259459

PATIENT
  Sex: Male
  Weight: 81.179 kg

DRUGS (5)
  1. ACETYLSALICYLIC ACID [Concomitant]
     Indication: MYOCARDIAL INFARCTION
     Dosage: 325 MG, DAILY
  2. ZOLOFT [Concomitant]
     Indication: BIPOLAR DISORDER
     Dosage: 100 MG, DAILY
  3. FISH OIL [Concomitant]
     Indication: BLOOD CHOLESTEROL ABNORMAL
     Dosage: 1000 MG, DAILY
  4. CHANTIX [Suspect]
     Indication: SMOKING CESSATION THERAPY
     Dosage: 0.5 MG, DAILY
     Route: 048
     Dates: start: 20111011, end: 20111001
  5. CHANTIX [Suspect]
     Dosage: 1 MG, 2X/DAY
     Route: 048
     Dates: start: 20111001

REACTIONS (1)
  - HEADACHE [None]
